FAERS Safety Report 8421294-1 (Version None)
Quarter: 2012Q2

REPORT INFORMATION
  Report Type: 
  Country: None (occurrence: None)
  Receive Date: 20120608
  Receipt Date: 20120530
  Transmission Date: 20120825
  Serious: Yes (Other)
  Sender: FDA-Public Use
  Company Number: US-JNJFOC-20120600692

PATIENT
  Age: 80 Year
  Sex: Female

DRUGS (11)
  1. DIGOXIN [Concomitant]
     Dosage: ADMINISTERED ^M-W-F^
  2. LEVOTHYROXINE SODIUM [Concomitant]
  3. MULTI-VITAMINS [Concomitant]
  4. PRAVASTATIN [Concomitant]
  5. REMICADE [Suspect]
     Indication: RHEUMATOID ARTHRITIS
     Route: 042
  6. NEXIUM [Concomitant]
  7. AMLODIPINE [Concomitant]
  8. FISH OIL [Concomitant]
  9. LISINOPRIL [Concomitant]
  10. CALCIUM AND VIT D [Concomitant]
  11. ALL OTHER THERAPEUTIC PRODUCTS [Concomitant]

REACTIONS (1)
  - MALIGNANT MELANOMA [None]
